FAERS Safety Report 11606118 (Version 1)
Quarter: 2015Q4

REPORT INFORMATION
  Report Type: Other
  Country: US (occurrence: US)
  Receive Date: 20151007
  Receipt Date: 20151007
  Transmission Date: 20160304
  Serious: Yes (Other)
  Sender: FDA-Public Use
  Company Number: US-SIM_00664_2015

PATIENT
  Sex: Male

DRUGS (1)
  1. ALLERGY EYE RELIEF (LIGHT BLUE) (HOMEOPATHIC) [Suspect]
     Active Substance: HOMEOPATHICS
     Indication: PRODUCT USED FOR UNKNOWN INDICATION
     Dosage: 2 DROPS IN RIGHT EYE/ONCE/
     Route: 047
     Dates: start: 20150914, end: 20150914

REACTIONS (3)
  - Ocular hyperaemia [Recovering/Resolving]
  - Visual impairment [Recovering/Resolving]
  - Blindness transient [None]

NARRATIVE: CASE EVENT DATE: 20150914
